FAERS Safety Report 9967160 (Version 1)
Quarter: 2014Q1

REPORT INFORMATION
  Report Type: Report from Study
  Country: US (occurrence: US)
  Receive Date: 20140305
  Receipt Date: 20140305
  Transmission Date: 20141002
  Serious: No
  Sender: FDA-Public Use
  Company Number: US-ABBVIE-13P-163-1139719-00

PATIENT
  Age: 54 Year
  Sex: Male

DRUGS (5)
  1. HUMIRA [Suspect]
     Indication: RHEUMATOID ARTHRITIS
     Route: 058
     Dates: start: 201303
  2. NARCOTICS [Concomitant]
     Indication: PRODUCT USED FOR UNKNOWN INDICATION
  3. DURAGESIC [Concomitant]
     Indication: PRODUCT USED FOR UNKNOWN INDICATION
     Dosage: PATCH 75 MG
     Dates: end: 20130806
  4. DURAGESIC [Concomitant]
     Dosage: REDUCED TO 50 MG PATCH
     Dates: start: 20130806, end: 20130825
  5. DURAGESIC [Concomitant]
     Dosage: PATCH
     Dates: start: 20130825

REACTIONS (1)
  - Therapy change [Recovering/Resolving]
